FAERS Safety Report 9324182 (Version 1)
Quarter: 2013Q2

REPORT INFORMATION
  Report Type: Spontaneous
  Country: US (occurrence: US)
  Receive Date: 20130603
  Receipt Date: 20130603
  Transmission Date: 20140414
  Serious: Yes (Other)
  Sender: FDA-Public Use
  Company Number: US-NOVOPROD-378605

PATIENT
  Age: 68 Year
  Sex: Female
  Weight: 122.45 kg

DRUGS (6)
  1. LEVEMIR FLEXPEN [Suspect]
     Indication: TYPE 2 DIABETES MELLITUS
     Dosage: 45 U PM
     Route: 058
     Dates: start: 201006
  2. LEVEMIR FLEXPEN [Suspect]
     Dosage: 86 U PM
     Route: 058
  3. LEVEMIR FLEXPEN [Suspect]
     Dosage: 90 U PM
     Route: 058
     Dates: end: 201304
  4. LEVEMIR FLEXPEN [Suspect]
     Dosage: 45 U BID
     Route: 058
     Dates: start: 201304
  5. NOVOLOG FLEXPEN [Suspect]
     Indication: TYPE 2 DIABETES MELLITUS
     Dosage: SLIDING SCALE TID BEFORE MEALS
     Route: 058
     Dates: start: 201006
  6. OXYBUTYNIN [Concomitant]
     Indication: PRODUCT USED FOR UNKNOWN INDICATION
     Dosage: 5 MG QD EXTENDED RELEASE
     Route: 048

REACTIONS (4)
  - Tooth abscess [Not Recovered/Not Resolved]
  - Sinusitis [Not Recovered/Not Resolved]
  - Headache [Recovering/Resolving]
  - Blood glucose increased [Not Recovered/Not Resolved]
